FAERS Safety Report 5700767-6 (Version None)
Quarter: 2008Q2

REPORT INFORMATION
  Report Type: 
  Country: None (occurrence: None)
  Receive Date: 20080410
  Receipt Date: 20080326
  Transmission Date: 20081010
  Serious: Yes (Death, Hospitalization)
  Sender: FDA-Public Use
  Company Number: DE-AMGEN-UK265518

PATIENT
  Sex: Male
  Weight: 76.5 kg

DRUGS (8)
  1. MIMPARA [Suspect]
     Indication: HYPERPARATHYROIDISM SECONDARY
     Route: 048
     Dates: start: 20050613
  2. LISINOPRIL [Concomitant]
     Route: 065
     Dates: start: 20040310
  3. MOXONIDINE [Concomitant]
     Dates: start: 20050214
  4. AMLODIPINE [Concomitant]
     Dates: start: 20050822
  5. CLONIDINE HCL [Concomitant]
     Dates: start: 20070404
  6. OMEPRAZOLE [Concomitant]
     Dates: start: 20030723
  7. VITARENAL [Concomitant]
     Dates: start: 20030725
  8. CALCIUM CARBONATE [Concomitant]
     Dates: start: 20031001

REACTIONS (2)
  - CEREBRAL HAEMORRHAGE [None]
  - MULTI-ORGAN FAILURE [None]
